FAERS Safety Report 16799302 (Version 2)
Quarter: 2019Q3

REPORT INFORMATION
  Report Type: Spontaneous
  Country: US (occurrence: US)
  Receive Date: 20190912
  Receipt Date: 20190926
  Transmission Date: 20191005
  Serious: No
  Sender: FDA-Public Use
  Company Number: US-PFIZER INC-2019393829

PATIENT
  Age: 82 Year
  Sex: Female
  Weight: 65.31 kg

DRUGS (3)
  1. ADVIL [Suspect]
     Active Substance: IBUPROFEN
     Indication: BACK PAIN
  2. ADVIL [Suspect]
     Active Substance: IBUPROFEN
     Indication: SPINAL STENOSIS
     Dosage: 2 DF, AS NEEDED(TOOK 2 REG)
     Route: 048
     Dates: start: 201908
  3. ZESTRIL [Concomitant]
     Active Substance: LISINOPRIL
     Indication: HYPERTENSION
     Dosage: 10 MG, 1X/DAY
     Route: 048
     Dates: start: 1997

REACTIONS (1)
  - Insomnia [Recovered/Resolved]

NARRATIVE: CASE EVENT DATE: 201908
